FAERS Safety Report 5415577-7 (Version None)
Quarter: 2007Q3

REPORT INFORMATION
  Report Type: 
  Country: None (occurrence: None)
  Receive Date: 20070815
  Receipt Date: 20070621
  Transmission Date: 20080115
  Serious: Yes (Other)
  Sender: FDA-Public Use
  Company Number: US-PURDUE-USA_2007_0028016

PATIENT
  Age: 43 Year
  Sex: Female
  Weight: 86 kg

DRUGS (2)
  1. OXYCONTIN [Suspect]
     Indication: ARTHRALGIA
     Dosage: UNK, SEE TEXT
     Dates: start: 19990101, end: 20011011
  2. VALIUM [Concomitant]
     Dosage: 10 MG, UNK

REACTIONS (28)
  - ABORTION MISSED [None]
  - ABORTION SPONTANEOUS [None]
  - AMNESIA [None]
  - ANXIETY [None]
  - BRONCHIAL DISORDER [None]
  - CONFUSIONAL STATE [None]
  - DEPRESSION [None]
  - DRUG DEPENDENCE [None]
  - DRUG EXPOSURE DURING PREGNANCY [None]
  - DRUG INEFFECTIVE [None]
  - DRUG TOLERANCE [None]
  - DRUG WITHDRAWAL SYNDROME [None]
  - EMOTIONAL DISORDER [None]
  - EUPHORIC MOOD [None]
  - FEAR [None]
  - FEELINGS OF WORTHLESSNESS [None]
  - HALLUCINATION, AUDITORY [None]
  - HYPERTENSION [None]
  - INADEQUATE ANALGESIA [None]
  - INSOMNIA [None]
  - IRRITABILITY [None]
  - JUDGEMENT IMPAIRED [None]
  - MYOCARDIAL INFARCTION [None]
  - NERVOUSNESS [None]
  - PAIN [None]
  - SELF ESTEEM DECREASED [None]
  - SUICIDAL IDEATION [None]
  - VAGINAL HAEMORRHAGE [None]
